FAERS Safety Report 11815648 (Version 1)
Quarter: 2015Q4

REPORT INFORMATION
  Report Type: Report from Study
  Country: US (occurrence: US)
  Receive Date: 20151209
  Receipt Date: 20151209
  Transmission Date: 20160305
  Serious: Yes (Other)
  Sender: FDA-Public Use
  Company Number: US-MYLANLABS-2015M1042293

PATIENT

DRUGS (22)
  1. VINCRISTINE [Suspect]
     Active Substance: VINCRISTINE
     Dosage: 2 MG ON DAYS 1, CYCLE
     Route: 042
     Dates: start: 20141205, end: 20150126
  2. METHOTREXATE [Suspect]
     Active Substance: METHOTREXATE
     Dosage: 200 MG/M2 OVER 22 HOURS
     Route: 042
     Dates: start: 20150106, end: 20150108
  3. INSULIN REGULAR                    /01223201/ [Concomitant]
     Active Substance: INSULIN BEEF
     Dosage: 100 IU, TID
     Route: 058
  4. CYTARABINE. [Suspect]
     Active Substance: CYTARABINE
     Dosage: 100 MG ON DAY 1, CYCLE
     Route: 037
     Dates: start: 20141205, end: 20150126
  5. METHOTREXATE [Suspect]
     Active Substance: METHOTREXATE
     Dosage: 50 MG/M2 OVER 2 HOURS ON CYCLE 2 DAY 1
     Route: 042
     Dates: start: 20150106, end: 20150106
  6. POTASSIUM CHLORIDE. [Concomitant]
     Active Substance: POTASSIUM CHLORIDE
     Dosage: 20 MEQ, BID
     Route: 048
  7. METHYLPREDNISOLONE SODIUM SUCCINATE. [Suspect]
     Active Substance: METHYLPREDNISOLONE SODIUM SUCCINATE
     Dosage: 40 MG, BID ON DAYS 1-3, CYCLE 2
     Route: 042
     Dates: start: 20150106, end: 20150109
  8. MESNA. [Suspect]
     Active Substance: MESNA
     Dosage: 300 MG/M2, CONTINUOUS INFUSION DAYS 1-3 CYCLE
     Route: 042
     Dates: start: 20141205, end: 20150126
  9. LANTUS [Concomitant]
     Active Substance: INSULIN GLARGINE
     Dosage: 20 IU, QD
     Route: 058
  10. SPIRONOLACTONE. [Concomitant]
     Active Substance: SPIRONOLACTONE
     Dosage: 25 MG, QD
     Route: 048
  11. INOTUZUMAB OZOGAMICIN [Suspect]
     Active Substance: INOTUZUMAB OZOGAMICIN
     Dosage: 1.8 MG/M2, CYCLE
     Route: 042
     Dates: start: 20141207, end: 20141207
  12. INOTUZUMAB OZOGAMICIN [Suspect]
     Active Substance: INOTUZUMAB OZOGAMICIN
     Dosage: 1 MG/M2, CYCLIC ON CYCLE 2 DAY 3
     Route: 042
     Dates: start: 20150109, end: 20150109
  13. ASPIRIN                            /00002701/ [Concomitant]
     Active Substance: ASPIRIN
     Dosage: 81 MG, QD
     Route: 048
  14. LASIX [Concomitant]
     Active Substance: FUROSEMIDE
     Dosage: 20 MG, QD
     Route: 048
  15. CYTARABINE. [Suspect]
     Active Substance: CYTARABINE
     Dosage: 0.5 MG/M2, BID ON DAYS 2 AND 3
     Route: 042
     Dates: start: 20150107, end: 20150110
  16. CYCLOPHOSPHAMIDE. [Suspect]
     Active Substance: CYCLOPHOSPHAMIDE
     Dosage: 150 MG/M2, BID ON DAYS 1-4
     Route: 042
     Dates: start: 20141205, end: 20150126
  17. IPRATROPIUM BROMIDE AND SALBUTAMOL SULFATE [Concomitant]
     Active Substance: ALBUTEROL SULFATE\IPRATROPIUM BROMIDE
     Indication: DYSPNOEA
     Dosage: 6 CUBIC CENTIMETERS
  18. LEXAPRO [Concomitant]
     Active Substance: ESCITALOPRAM OXALATE
     Dosage: 10 MG, QD
     Route: 048
  19. FLOMAX [Concomitant]
     Active Substance: TAMSULOSIN HYDROCHLORIDE
     Dosage: UNK
  20. METHOTREXATE [Suspect]
     Active Substance: METHOTREXATE
     Dosage: 12 MG, CYCLE 1 DAY 1 AND CYCLE 2 DAY 2
     Route: 037
     Dates: start: 20141205, end: 20150107
  21. PROTONIX                           /00661201/ [Concomitant]
     Active Substance: OMEPRAZOLE
     Dosage: 40 MG, QD
     Route: 048
  22. RITUXIMAB [Suspect]
     Active Substance: RITUXIMAB
     Dosage: 375 MG/M2, CYCLE
     Route: 042
     Dates: start: 20141206, end: 20150112

REACTIONS (1)
  - Venoocclusive liver disease [Unknown]

NARRATIVE: CASE EVENT DATE: 20150318
